FAERS Safety Report 7556572-1 (Version None)
Quarter: 2011Q2

REPORT INFORMATION
  Report Type: 
  Country: None (occurrence: None)
  Receive Date: 20110620
  Receipt Date: 20110609
  Transmission Date: 20111010
  Serious: Yes (Death, Other)
  Sender: FDA-Public Use
  Company Number: ES-ELI_LILLY_AND_COMPANY-ES201106002738

PATIENT
  Sex: Female

DRUGS (8)
  1. ISCOVER [Concomitant]
     Indication: ANTICOAGULANT THERAPY
     Dosage: 1 DF, QD
     Route: 048
  2. PRAVASTATIN [Concomitant]
     Indication: HYPERLIPIDAEMIA
     Dosage: 1 DF, QD
     Route: 048
  3. MORFINE [Concomitant]
     Indication: ANALGESIC THERAPY
     Dosage: 25 MG, QD
     Route: 062
  4. BELMAZOL [Concomitant]
     Indication: GASTROINTESTINAL DISORDER
     Dosage: 1 DF, QD
     Route: 048
  5. LYRICA [Concomitant]
     Indication: ANALGESIC THERAPY
     Dosage: 75 MG, TID
     Route: 048
  6. ADOLONTA [Concomitant]
     Dosage: UNK, PRN
     Route: 048
  7. ADOLONTA [Concomitant]
     Indication: ANALGESIC THERAPY
     Dosage: 75 MG, BID
     Route: 048
  8. FORTEO [Suspect]
     Indication: OSTEOPOROSIS
     Dosage: 20 UG, QD
     Route: 058
     Dates: start: 20100301

REACTIONS (2)
  - INFARCTION [None]
  - DEATH [None]
